FAERS Safety Report 10241865 (Version 4)
Quarter: 2015Q1

REPORT INFORMATION
  Report Type: Spontaneous
  Country: US (occurrence: US)
  Receive Date: 20140617
  Receipt Date: 20150107
  Transmission Date: 20150720
  Serious: Yes (Death, Hospitalization, Other)
  Sender: FDA-Public Use
  Company Number: US-GLAXOSMITHKLINE-A1077178A

PATIENT
  Age: 71 Year
  Sex: Female
  Weight: 62.6 kg

DRUGS (10)
  1. CRESTOR [Concomitant]
     Active Substance: ROSUVASTATIN CALCIUM
  2. BYSTOLIC [Concomitant]
     Active Substance: NEBIVOLOL HYDROCHLORIDE
  3. KEPPRA [Suspect]
     Active Substance: LEVETIRACETAM
     Indication: SEIZURE
     Dosage: 500 MG TWICE PER DAY, TOTAL DAILY DOSE OF 1000 MG
     Route: 048
  4. PREDNISONE. [Concomitant]
     Active Substance: PREDNISONE
  5. CLONIDINE. [Concomitant]
     Active Substance: CLONIDINE
  6. OXYBUTYNIN [Concomitant]
     Active Substance: OXYBUTYNIN
  7. PROMACTA [Suspect]
     Active Substance: ELTROMBOPAG OLAMINE
     Indication: IMMUNE THROMBOCYTOPENIC PURPURA
     Dosage: 50 MG DAILY
     Route: 048
     Dates: start: 20140217
  8. DIOVAN [Concomitant]
     Active Substance: VALSARTAN
  9. AMLODIPINE [Concomitant]
     Active Substance: AMLODIPINE BESYLATE
  10. KLOR-CON [Concomitant]
     Active Substance: POTASSIUM CHLORIDE

REACTIONS (11)
  - Generalised tonic-clonic seizure [Recovered/Resolved]
  - Faecal volume increased [Unknown]
  - Drug dose omission [Recovered/Resolved]
  - Thrombocytopenia [Recovering/Resolving]
  - Platelet transfusion [Recovering/Resolving]
  - Hospitalisation [Recovered/Resolved]
  - Death [Fatal]
  - Seizure [Unknown]
  - Pain [Unknown]
  - Mental status changes [Recovered/Resolved]
  - Frequent bowel movements [Unknown]

NARRATIVE: CASE EVENT DATE: 20140329
